FAERS Safety Report 16847577 (Version 4)
Quarter: 2020Q2

REPORT INFORMATION
  Report Type: Report from Study
  Country: US (occurrence: US)
  Receive Date: 20190924
  Receipt Date: 20200508
  Transmission Date: 20200713
  Serious: Yes (Other)
  Sender: FDA-Public Use
  Company Number: US-ALLERGAN-1937262US

PATIENT
  Sex: Male
  Weight: 77.55 kg

DRUGS (4)
  1. BLINDED BIMATOPROST 0.015 MG INS (11048X) [Suspect]
     Active Substance: BIMATOPROST
     Indication: OPEN ANGLE GLAUCOMA
     Dosage: UNK
     Dates: start: 20190411, end: 20190910
  2. PLACEBO [Suspect]
     Active Substance: UNSPECIFIED INGREDIENT
     Indication: OPEN ANGLE GLAUCOMA
     Dosage: UNK
     Dates: start: 20190411, end: 20190910
  3. PLACEBO [Suspect]
     Active Substance: UNSPECIFIED INGREDIENT
     Dosage: UNK
     Dates: start: 20181221, end: 20181221
  4. BLINDED BIMATOPROST 0.015 MG INS (11048X) [Suspect]
     Active Substance: BIMATOPROST
     Dosage: UNK
     Dates: start: 20181221, end: 20181221

REACTIONS (1)
  - Corneal endothelial cell loss [Recovered/Resolved]

NARRATIVE: CASE EVENT DATE: 20190709
